FAERS Safety Report 6242522-7 (Version None)
Quarter: 2009Q2

REPORT INFORMATION
  Report Type: 
  Country: None (occurrence: None)
  Receive Date: 20090624
  Receipt Date: 20090615
  Transmission Date: 20091009
  Serious: Yes (Hospitalization)
  Sender: FDA-Public Use
  Company Number: US-ROCHE-638205

PATIENT
  Age: 56 Year
  Sex: Male

DRUGS (10)
  1. MYCOPHENOLATE MOFETIL [Suspect]
     Route: 065
  2. RITUXIMAB [Suspect]
     Indication: DRUG USE FOR UNKNOWN INDICATION
     Route: 065
  3. RITUXIMAB [Suspect]
     Route: 065
  4. BASILIXIMAB [Suspect]
     Route: 065
  5. PREDNISONE [Suspect]
     Route: 065
  6. TACROLIMUS [Suspect]
     Dosage: LEVELS TARGETED BETWEEN  10 AND 15 NG/ML.
     Route: 065
  7. METHYLPREDNISOLONE [Suspect]
     Dosage: DOSAGE: 250 MG IN THREE DOSES.
     Route: 065
  8. BORTEZOMIB [Suspect]
     Dosage: 1.3 MG/M2 IN FOUR DOSES.
     Route: 065
  9. BORTEZOMIB [Suspect]
     Dosage: SECOND COURSE.
     Route: 065
  10. RATG [Suspect]
     Dosage: IN 8 DOSES.
     Route: 065

REACTIONS (2)
  - DIARRHOEA [None]
  - TRANSPLANT REJECTION [None]
